FAERS Safety Report 9593789 (Version 1)
Quarter: 2013Q4

REPORT INFORMATION
  Report Type: Spontaneous
  Country: US (occurrence: None)
  Receive Date: 20131002
  Receipt Date: 20131002
  Transmission Date: 20140711
  Serious: Yes (Hospitalization)
  Sender: FDA-Public Use
  Company Number: NSR_01257_2013

PATIENT
  Age: 12 Month
  Sex: Female
  Weight: 8.9 kg

DRUGS (1)
  1. LAMOTRIGINE [Suspect]
     Indication: PRODUCT USED FOR UNKNOWN INDICATION
     Dosage: DF (NOT THE PRESCRIBED DOSE, UNKNOWN QUANTITY), ORAL
     Route: 048

REACTIONS (9)
  - Toxicity to various agents [None]
  - Serotonin syndrome [None]
  - Nausea [None]
  - Nervous system disorder [None]
  - Electrocardiogram abnormal [None]
  - Hyperhidrosis [None]
  - Accidental exposure to product by child [None]
  - Crying [None]
  - Myoclonus [None]
